FAERS Safety Report 7683741-2 (Version None)
Quarter: 2011Q3

REPORT INFORMATION
  Report Type: 
  Country: None (occurrence: None)
  Receive Date: 20110805
  Receipt Date: 20110729
  Transmission Date: 20111222
  Serious: Yes (Other)
  Sender: FDA-Public Use
  Company Number: 2010026943

PATIENT
  Age: 66 Year
  Sex: Female
  Weight: 76.2043 kg

DRUGS (31)
  1. HIZENTRA [Suspect]
  2. VALTURNA [Suspect]
     Dosage: 300/320 MG DAILY
  3. DOMPERIDONE (DOMPERIDONE) [Concomitant]
  4. CLARITHROMYCIN [Concomitant]
  5. SODIUM BICARBONATE IN PLASTIC CONTAINER [Concomitant]
  6. HIZENTRA [Suspect]
  7. HIZENTRA [Suspect]
  8. HIZENTRA [Suspect]
  9. HIZENTRA [Suspect]
     Indication: SELECTIVE IGA IMMUNODEFICIENCY
     Dosage: 11 G 1X/WEEK, 11 GM WEEKLY, 11G 1X/WEEK, 1 GM 5 ML VIAL, 55 ML IN 4 SITES OVER 1.5-2 HOURS, SUBCUTAN
     Route: 058
     Dates: start: 20101108
  10. HIZENTRA [Suspect]
     Indication: IMMUNODEFICIENCY COMMON VARIABLE
     Dosage: 11 G 1X/WEEK, 11 GM WEEKLY, 11G 1X/WEEK, 1 GM 5 ML VIAL, 55 ML IN 4 SITES OVER 1.5-2 HOURS, SUBCUTAN
     Route: 058
     Dates: start: 20101108
  11. HIZENTRA [Suspect]
  12. ALPRAZOLAM EXTENDED-RELEASE [Concomitant]
  13. UROXATRAL [Concomitant]
  14. POTASSIUM CHLORIDE [Concomitant]
  15. AMOXICILLIN [Concomitant]
  16. FLUCONAZOLE [Concomitant]
  17. FOLBIC (ACCOMIN MULTIVITAMIN) [Concomitant]
  18. BACTRIM [Concomitant]
  19. HIZENTRA [Suspect]
  20. CALTRATE (CALCIUM CARBONATE) [Concomitant]
  21. IBUPROFEN [Concomitant]
  22. HIZENTRA [Suspect]
  23. HIZENTRA [Suspect]
  24. LIPITOR [Concomitant]
  25. ROPINIROLE [Concomitant]
  26. HIZENTRA [Suspect]
  27. LASIX [Concomitant]
  28. HIZENTRA [Suspect]
  29. HIZENTRA [Suspect]
  30. PRILOSEC [Concomitant]
  31. DIOVAN [Concomitant]

REACTIONS (8)
  - URINARY TRACT INFECTION [None]
  - INFUSION SITE SWELLING [None]
  - NAUSEA [None]
  - BLOOD SODIUM INCREASED [None]
  - BRONCHITIS [None]
  - INFUSION SITE PRURITUS [None]
  - HYPOTENSION [None]
  - BLOOD SODIUM DECREASED [None]
